FAERS Safety Report 17242100 (Version 2)
Quarter: 2020Q1

REPORT INFORMATION
  Report Type: Spontaneous
  Country: US (occurrence: US)
  Receive Date: 20200107
  Receipt Date: 20200109
  Transmission Date: 20200409
  Serious: Yes (Other)
  Sender: FDA-Public Use
  Company Number: US-BRISTOL-MYERS SQUIBB COMPANY-BMS-2020-000769

PATIENT
  Age: 41 Year
  Sex: Female
  Weight: 40.82 kg

DRUGS (1)
  1. OPDIVO [Suspect]
     Active Substance: NIVOLUMAB
     Indication: CERVIX CARCINOMA
     Dosage: UNK UNK, Q2WK
     Route: 065
     Dates: start: 20191204

REACTIONS (7)
  - Hyperthyroidism [Unknown]
  - Skin atrophy [Unknown]
  - Myalgia [Unknown]
  - Rash [Unknown]
  - Proctalgia [Unknown]
  - Weight decreased [Unknown]
  - Intentional product use issue [Unknown]
